FAERS Safety Report 17582145 (Version 1)
Quarter: 2020Q1

REPORT INFORMATION
  Report Type: Spontaneous
  Country: US (occurrence: US)
  Receive Date: 20200325
  Receipt Date: 20200325
  Transmission Date: 20200409
  Serious: No
  Sender: FDA-Public Use
  Company Number: US-AMNEAL PHARMACEUTICALS-2019AMN00470

PATIENT
  Sex: Female

DRUGS (1)
  1. BENAZEPRIL HYDROCHLORIDE. [Suspect]
     Active Substance: BENAZEPRIL HYDROCHLORIDE
     Indication: PRODUCT USED FOR UNKNOWN INDICATION
     Dosage: 80 MG, 1X/DAY
     Route: 065

REACTIONS (4)
  - Micturition urgency [Unknown]
  - Back pain [Unknown]
  - Abdominal distension [Unknown]
  - Insomnia [Unknown]
